FAERS Safety Report 13652245 (Version 1)
Quarter: 2017Q2

REPORT INFORMATION
  Report Type: Spontaneous
  Country: BR (occurrence: BR)
  Receive Date: 20170614
  Receipt Date: 20170614
  Transmission Date: 20170830
  Serious: Yes (Other)
  Sender: FDA-Public Use
  Company Number: BR-JNJFOC-20170611244

PATIENT
  Age: 77 Year
  Sex: Male
  Weight: 63 kg

DRUGS (3)
  1. GABAPENTINA [Concomitant]
     Active Substance: GABAPENTIN
     Indication: SCIATICA
     Route: 065
  2. SIMPONI [Suspect]
     Active Substance: GOLIMUMAB
     Indication: RHEUMATOID ARTHRITIS
     Route: 058
     Dates: start: 2015
  3. PRESS PLUS [Concomitant]
     Indication: HYPERTENSION
     Dosage: 5 MG + 10 MG
     Route: 065

REACTIONS (4)
  - Post procedural infection [Unknown]
  - Arthralgia [Unknown]
  - Fall [Unknown]
  - Upper limb fracture [Unknown]

NARRATIVE: CASE EVENT DATE: 20161009
